FAERS Safety Report 22206779 (Version 1)
Quarter: 2023Q2

REPORT INFORMATION
  Report Type: Spontaneous
  Country: US (occurrence: US)
  Receive Date: 20230413
  Receipt Date: 20230413
  Transmission Date: 20230721
  Serious: Yes (Other)
  Sender: FDA-Public Use
  Company Number: US-PFIZER INC-202300152157

PATIENT
  Age: 57 Year
  Sex: Female

DRUGS (2)
  1. XELJANZ XR [Suspect]
     Active Substance: TOFACITINIB CITRATE
     Dosage: 11 MG, 1X/DAY
     Route: 048
  2. MAXALT [Concomitant]
     Active Substance: RIZATRIPTAN BENZOATE
     Dosage: 10 MG

REACTIONS (2)
  - Rheumatoid arthritis [Not Recovered/Not Resolved]
  - Condition aggravated [Unknown]
